FAERS Safety Report 8507578 (Version 2)
Quarter: 2013Q3

REPORT INFORMATION
  Report Type: Spontaneous
  Country: US (occurrence: US)
  Receive Date: 20120412
  Receipt Date: 20130828
  Transmission Date: 20140515
  Serious: No
  Sender: FDA-Public Use
  Company Number: US-ASTRAZENECA-2011SE13647

PATIENT
  Age: 42 Year
  Sex: Female
  Weight: 86.2 kg

DRUGS (13)
  1. NEXIUM [Suspect]
     Indication: GASTROOESOPHAGEAL REFLUX DISEASE
     Route: 048
  2. PRILOSEC OTC [Suspect]
     Indication: GASTROOESOPHAGEAL REFLUX DISEASE
     Route: 048
     Dates: start: 2003, end: 2013
  3. SEROQUEL [Suspect]
     Indication: PSYCHOTIC DISORDER
     Route: 048
  4. TRIMT-HCTZ [Suspect]
     Indication: CARDIAC DISORDER
     Dosage: DAILY
     Route: 048
     Dates: start: 2010
  5. TRIMT-HCTZ [Suspect]
     Indication: DIURETIC THERAPY
     Dosage: DAILY
     Route: 048
     Dates: start: 2010
  6. PEPCID [Concomitant]
     Indication: GASTROOESOPHAGEAL REFLUX DISEASE
     Dosage: PRN
     Route: 048
     Dates: start: 2013
  7. SUMBOXONE [Concomitant]
     Indication: DRUG THERAPY
     Route: 048
     Dates: start: 2011
  8. COREG [Concomitant]
     Indication: CARDIAC DISORDER
     Route: 048
     Dates: start: 2011
  9. OTC ALLERGY MEDICATION [Concomitant]
     Indication: SEASONAL ALLERGY
     Dosage: PRN
     Route: 048
     Dates: start: 2013
  10. BUSPAR [Concomitant]
     Indication: NERVOUSNESS
     Route: 048
  11. ZOLOFT [Concomitant]
     Indication: DEPRESSION
     Route: 048
  12. LEVOTHYROXINE [Concomitant]
     Indication: THYROID DISORDER
     Dates: start: 2009
  13. IBUPROFEN [Concomitant]
     Indication: ARTHRITIS
     Route: 048
     Dates: start: 2007

REACTIONS (17)
  - Gastrooesophageal reflux disease [Not Recovered/Not Resolved]
  - Cough [Unknown]
  - Aspiration [Unknown]
  - Dysphonia [Unknown]
  - Hypertension [Not Recovered/Not Resolved]
  - Thyroid disorder [Not Recovered/Not Resolved]
  - Arthritis [Not Recovered/Not Resolved]
  - Anaemia [Not Recovered/Not Resolved]
  - Rhinorrhoea [Not Recovered/Not Resolved]
  - Burning sensation [Unknown]
  - Dyspnoea [Unknown]
  - Heart rate increased [Not Recovered/Not Resolved]
  - Epigastric discomfort [Unknown]
  - Eructation [Recovered/Resolved]
  - Vomiting [Unknown]
  - Intentional drug misuse [Recovered/Resolved]
  - Intentional drug misuse [Unknown]
